FAERS Safety Report 16982765 (Version 1)
Quarter: 2019Q4

REPORT INFORMATION
  Report Type: Spontaneous
  Country: DE (occurrence: DE)
  Receive Date: 20191101
  Receipt Date: 20191101
  Transmission Date: 20200122
  Serious: Yes (Other)
  Sender: FDA-Public Use
  Company Number: DE-SUN PHARMACEUTICAL INDUSTRIES LTD-2019RR-219908

PATIENT
  Age: 62 Year
  Sex: Female
  Weight: 75 kg

DRUGS (2)
  1. CIPRO BASICS 500MG FILMTABLETTEN [Suspect]
     Active Substance: CIPROFLOXACIN HYDROCHLORIDE
     Indication: PRODUCT USED FOR UNKNOWN INDICATION
     Dosage: 500 MILLIGRAM, BID
     Route: 048
     Dates: start: 20190605, end: 20190612
  2. VALPROAT [Concomitant]
     Active Substance: VALPROATE SODIUM
     Indication: PRODUCT USED FOR UNKNOWN INDICATION
     Dosage: 500MG-0-800MG
     Route: 065

REACTIONS (29)
  - Malaise [Recovered/Resolved]
  - Alopecia [Not Recovered/Not Resolved]
  - Oropharyngeal discomfort [Recovered/Resolved]
  - Photopsia [Unknown]
  - Angiopathy [Recovered/Resolved]
  - Pain in jaw [Recovered/Resolved]
  - Weight decreased [Recovered/Resolved]
  - Fatigue [Not Recovered/Not Resolved]
  - Retinal detachment [Unknown]
  - Pyrexia [Recovered/Resolved]
  - Tenderness [Recovered/Resolved]
  - Hypotonia [Not Recovered/Not Resolved]
  - Visual impairment [Not Recovered/Not Resolved]
  - Joint swelling [Recovered/Resolved]
  - Myalgia [Recovered/Resolved]
  - Dizziness [Recovered/Resolved]
  - Headache [Recovered/Resolved]
  - Tendon pain [Recovered/Resolved]
  - Arthritis [Recovered/Resolved]
  - Memory impairment [Recovered/Resolved]
  - Night sweats [Recovered/Resolved]
  - Inflammatory marker increased [Recovered/Resolved]
  - Blood urine present [Recovered/Resolved]
  - Migraine [Not Recovered/Not Resolved]
  - Depression [Recovered/Resolved]
  - Confusional state [Recovered/Resolved]
  - Muscular weakness [Recovered/Resolved]
  - Dysphagia [Recovered/Resolved]
  - Disturbance in attention [Not Recovered/Not Resolved]

NARRATIVE: CASE EVENT DATE: 20190608
